FAERS Safety Report 7494108-4 (Version None)
Quarter: 2011Q2

REPORT INFORMATION
  Report Type: 
  Country: None (occurrence: None)
  Receive Date: 20110520
  Receipt Date: 20110506
  Transmission Date: 20111010
  Serious: Yes (Death)
  Sender: FDA-Public Use
  Company Number: GB-JNJFOC-20100704526

PATIENT
  Age: 72 Year
  Sex: Female
  Weight: 68 kg

DRUGS (2)
  1. INFLIXIMAB, RECOMBINANT [Suspect]
     Indication: RHEUMATOID ARTHRITIS
     Route: 042
     Dates: start: 20020708, end: 20100119
  2. METHOTREXATE [Concomitant]
     Dates: start: 19960515, end: 20100309

REACTIONS (3)
  - GASTRIC CANCER [None]
  - PLEURAL EFFUSION [None]
  - METASTATIC GASTRIC CANCER [None]
